FAERS Safety Report 6542055-4 (Version None)
Quarter: 2010Q1

REPORT INFORMATION
  Report Type: 
  Country: None (occurrence: None)
  Receive Date: 20100119
  Receipt Date: 20100113
  Transmission Date: 20100710
  Serious: Yes (Other)
  Sender: FDA-Public Use
  Company Number: US-JNJCH-2010000896

PATIENT
  Age: 66 Year
  Sex: Male
  Weight: 77.1 kg

DRUGS (1)
  1. SUDAFED 12 HOUR [Suspect]
     Indication: SINUS CONGESTION
     Dosage: TEXT:1 CAPLET EVERY 12 HOURS
     Route: 048
     Dates: start: 20100110, end: 20100113

REACTIONS (1)
  - HEART RATE INCREASED [None]
